FAERS Safety Report 5338820-1 (Version None)
Quarter: 2007Q2

REPORT INFORMATION
  Report Type: 
  Country: None (occurrence: None)
  Receive Date: 20070530
  Receipt Date: 20060511
  Transmission Date: 20071010
  Serious: Yes (Hospitalization)
  Sender: FDA-Public Use
  Company Number: DE-BRISTOL-MYERS SQUIBB COMPANY-12975488

PATIENT
  Age: 68 Year
  Sex: Female

DRUGS (2)
  1. CETUXIMAB [Suspect]
     Indication: COLORECTAL CANCER
     Dosage: 1ST AND MOST RECENT INFUSION 10-AUG-2004. 19-AUG-2004 THERAPY PAUSED. 23-AUG-2004 DISCONTINUED.
     Route: 041
     Dates: start: 20040810
  2. IRINOTECAN HCL [Suspect]
     Indication: COLORECTAL CANCER
     Dosage: 1ST AND MOST RECENT INFUSION 10-AUG-2004. 19-AUG-2004 THERAPY PAUSED.
     Route: 042
     Dates: start: 20040810

REACTIONS (8)
  - DIARRHOEA [None]
  - DYSPNOEA [None]
  - FATIGUE [None]
  - HEADACHE [None]
  - HERPES ZOSTER [None]
  - HYPOTENSION [None]
  - NAUSEA [None]
  - NEUTROPENIA [None]
